FAERS Safety Report 5081548-6 (Version None)
Quarter: 2006Q3

REPORT INFORMATION
  Report Type: 
  Country: None (occurrence: None)
  Receive Date: 20060811
  Receipt Date: 20060727
  Transmission Date: 20061208
  Serious: Yes (Disabling)
  Sender: FDA-Public Use
  Company Number: 2006S1006974

PATIENT
  Age: 67 Year
  Sex: Female

DRUGS (4)
  1. TRIFLUOPERAZINE HYDROCHLORIDE [Suspect]
     Indication: SCHIZOPHRENIA
     Dosage: 2 MG;Q24;PO
     Route: 048
  2. TRIFLUOPERAZINE HYDROCHLORIDE [Suspect]
     Indication: SCHIZOPHRENIA
     Dosage: Q24;PO
     Route: 048
  3. CARVEDILOL [Concomitant]
  4. LORAZEPAM [Concomitant]

REACTIONS (3)
  - BLINDNESS UNILATERAL [None]
  - MACULAR DEGENERATION [None]
  - RETINOPATHY [None]
